FAERS Safety Report 11901994 (Version 1)
Quarter: 2016Q1

REPORT INFORMATION
  Report Type: Report from Study
  Country: US (occurrence: US)
  Receive Date: 20160108
  Receipt Date: 20160108
  Transmission Date: 20160526
  Serious: No
  Sender: FDA-Public Use
  Company Number: US-ABBVIE-15P-163-1496573-00

PATIENT
  Age: 66 Year
  Sex: Male

DRUGS (3)
  1. VIEKIRA PAK [Suspect]
     Active Substance: DASABUVIR\OMBITASVIR\PARITAPREVIR\RITONAVIR
     Indication: HEPATITIS C
     Dosage: 2 PINK TABLETS AND 1 BEIGE TABLE IN AM AND 1 BEIGE TABLET AT BEDTIME
     Route: 048
  2. PROMETHAZINE - CODEINE [Concomitant]
     Active Substance: CODEINE\PROMETHAZINE
     Indication: PRODUCT USED FOR UNKNOWN INDICATION
  3. DOCQLACE [Concomitant]
     Active Substance: DOCUSATE SODIUM
     Indication: PRODUCT USED FOR UNKNOWN INDICATION

REACTIONS (1)
  - Productive cough [Unknown]

NARRATIVE: CASE EVENT DATE: 20151103
